FAERS Safety Report 9878716 (Version 2)
Quarter: 2014Q1

REPORT INFORMATION
  Report Type: Spontaneous
  Country: US (occurrence: US)
  Receive Date: 20140206
  Receipt Date: 20140206
  Transmission Date: 20141002
  Serious: Yes (Death, Hospitalization)
  Sender: FDA-Public Use
  Company Number: US-GLAXOSMITHKLINE-A0730274A

PATIENT
  Age: 71 Year
  Sex: Male
  Weight: 59.1 kg

DRUGS (3)
  1. AVANDIA [Suspect]
     Indication: TYPE 2 DIABETES MELLITUS
     Dosage: 8MG PER DAY
     Route: 048
     Dates: start: 20010104, end: 20030324
  2. INSULIN [Concomitant]
  3. COREG [Concomitant]

REACTIONS (7)
  - Cardiac failure congestive [Fatal]
  - Cardiomyopathy [Fatal]
  - Cardiac arrest [Unknown]
  - Myocardial infarction [Unknown]
  - Cardiac disorder [Unknown]
  - Condition aggravated [Unknown]
  - Ventricular tachycardia [Unknown]
